FAERS Safety Report 8850720 (Version 1)
Quarter: 2012Q4

REPORT INFORMATION
  Report Type: 
  Country: CA (occurrence: CA)
  Receive Date: 20121019
  Receipt Date: 20121019
  Transmission Date: 20130627
  Serious: Yes (Hospitalization)
  Sender: FDA-Public Use
  Company Number: CA-BRISTOL-MYERS SQUIBB COMPANY-16539710

PATIENT
  Age: 81 Year
  Sex: Male

DRUGS (2)
  1. SPRYCEL [Suspect]
     Indication: CHRONIC MYELOID LEUKAEMIA
     Dosage: Drug interrupt on 19Apr2012
50mg OD
     Route: 048
     Dates: start: 20120321
  2. AMLODIPINE [Concomitant]

REACTIONS (3)
  - Pleural effusion [Unknown]
  - Fall [Unknown]
  - Spinal cord injury cervical [Unknown]
